FAERS Safety Report 11922526 (Version 1)
Quarter: 2016Q1

REPORT INFORMATION
  Report Type: Spontaneous
  Country: FI (occurrence: FI)
  Receive Date: 20160115
  Receipt Date: 20160115
  Transmission Date: 20160526
  Serious: Yes (Life-Threatening, Hospitalization, Other)
  Sender: FDA-Public Use
  Company Number: FI-ASTRAZENECA-2016SE02354

PATIENT
  Age: 31070 Day
  Sex: Female

DRUGS (9)
  1. BRILIQUE [Suspect]
     Active Substance: TICAGRELOR
     Indication: ACUTE MYOCARDIAL INFARCTION
     Route: 048
     Dates: start: 20150907, end: 20151028
  2. PAMOL [Concomitant]
     Active Substance: ACETAMINOPHEN
     Dosage: (MAX. 3000 MG/DAY) 1000 MG AS REQUIRED
     Route: 048
  3. ASA [Concomitant]
     Active Substance: ASPIRIN
     Route: 048
  4. ATORVASTATIN [Concomitant]
     Active Substance: ATORVASTATIN
     Route: 048
  5. KALEORID [Concomitant]
     Active Substance: POTASSIUM CHLORIDE
     Route: 048
  6. BISOPROLOL [Concomitant]
     Active Substance: BISOPROLOL
     Route: 048
  7. SOMAC [Concomitant]
     Active Substance: PANTOPRAZOLE SODIUM
     Route: 048
  8. CARDACE [Concomitant]
     Active Substance: RAMIPRIL
     Route: 048
  9. FURESIS [Concomitant]
     Active Substance: FUROSEMIDE
     Route: 048

REACTIONS (7)
  - Intestinal haemorrhage [Not Recovered/Not Resolved]
  - Myocardial infarction [Unknown]
  - Dyspnoea [Not Recovered/Not Resolved]
  - Melaena [Unknown]
  - Haemoglobin decreased [Unknown]
  - Coronary artery stenosis [Unknown]
  - Polyp [Unknown]

NARRATIVE: CASE EVENT DATE: 20150710
